FAERS Safety Report 8028573-0 (Version None)
Quarter: 2012Q1

REPORT INFORMATION
  Report Type: 
  Country: None (occurrence: None)
  Receive Date: 20120104
  Receipt Date: 20111221
  Transmission Date: 20120608
  Serious: Yes (Hospitalization)
  Sender: FDA-Public Use
  Company Number: 2011S1001716

PATIENT
  Age: 71 Year
  Sex: Male

DRUGS (4)
  1. ANPLAG (SARPOGRELATE HYDROCHLORIDE) [Suspect]
     Dosage: PO
     Route: 048
  2. LIVALO [Suspect]
     Indication: HYPERLIPIDAEMIA
     Dosage: PO
     Route: 048
  3. ASTOMIN /00426502/ (DIMEMORFAN PHOSPHATE) [Suspect]
     Dosage: PO
     Route: 048
     Dates: start: 20111101
  4. ACETYLCYSTEINE [Suspect]
     Dosage: PO
     Route: 048
     Dates: start: 20111101

REACTIONS (1)
  - PNEUMONIA [None]
